FAERS Safety Report 19722070 (Version 6)
Quarter: 2022Q1

REPORT INFORMATION
  Report Type: Report from Study
  Country: AT (occurrence: AT)
  Receive Date: 20210819
  Receipt Date: 20220106
  Transmission Date: 20220423
  Serious: Yes (Other)
  Sender: FDA-Public Use
  Company Number: AT-ROCHE-2475540

PATIENT
  Age: 79 Year
  Sex: Female
  Weight: 48 kg

DRUGS (47)
  1. LETROZOLE [Suspect]
     Active Substance: LETROZOLE
     Indication: Breast cancer
     Dosage: 2.5 MILLIGRAM, QD (ON 13/JUN/2019,)
     Route: 048
     Dates: start: 20181029
  2. LETROZOLE [Suspect]
     Active Substance: LETROZOLE
     Dosage: 3 MILLIGRAM, QD
     Dates: start: 20181029
  3. LETROZOLE [Suspect]
     Active Substance: LETROZOLE
     Dosage: 2.5 MILLIGRAM, QD
     Route: 048
     Dates: start: 20190613
  4. TRASTUZUMAB [Suspect]
     Active Substance: TRASTUZUMAB
     Indication: Breast cancer
     Dosage: 384 MILLIGRAM, Q3W (MOST RECENT DOSE PRIO)
     Route: 042
     Dates: start: 20180810, end: 20180831
  5. TRASTUZUMAB [Suspect]
     Active Substance: TRASTUZUMAB
     Dosage: 384 MILLIGRAM, Q3W
     Route: 042
     Dates: start: 20180928, end: 20180928
  6. TRASTUZUMAB [Suspect]
     Active Substance: TRASTUZUMAB
     Dosage: 276 MILLIGRAM, Q3W
     Route: 042
     Dates: start: 20181019, end: 20181019
  7. TRASTUZUMAB [Suspect]
     Active Substance: TRASTUZUMAB
     Dosage: 276 MILLIGRAM, QW
     Dates: start: 20180928, end: 20180928
  8. TRASTUZUMAB [Suspect]
     Active Substance: TRASTUZUMAB
     Dosage: 276 MILLIGRAM, QW
     Dates: start: 20180810, end: 20180831
  9. TRASTUZUMAB [Suspect]
     Active Substance: TRASTUZUMAB
     Indication: Breast cancer
     Dosage: 154 MILLIGRAM, Q3W
     Route: 042
     Dates: start: 20190704, end: 20190704
  10. FULVESTRANT [Suspect]
     Active Substance: FULVESTRANT
     Indication: Breast cancer
     Dosage: 500 MILLIGRAM, Q28D
     Route: 030
     Dates: start: 20190919, end: 20191112
  11. PACLITAXEL [Suspect]
     Active Substance: PACLITAXEL
     Indication: Breast cancer
     Dosage: 113.69 MILLIGRAM, QW (MOST RECENT DOSE 14/SEP/2018)
     Route: 042
     Dates: start: 20180810
  12. PACLITAXEL [Suspect]
     Active Substance: PACLITAXEL
     Dosage: 113.69 MILLIGRAM, QW
     Route: 042
     Dates: start: 20180914
  13. TAMOXIFEN [Suspect]
     Active Substance: TAMOXIFEN
     Indication: Breast cancer
     Dosage: 20 MILLIGRAM
     Route: 048
     Dates: start: 20190819, end: 20190827
  14. TAMOXIFEN [Suspect]
     Active Substance: TAMOXIFEN
     Dosage: UNK
     Route: 048
  15. PALBOCICLIB [Suspect]
     Active Substance: PALBOCICLIB
     Indication: Breast cancer
     Dosage: 125 MILLIGRAM (MOST RECENT DOSE 18/OCT/2019)
     Route: 048
     Dates: start: 20190919
  16. PALBOCICLIB [Suspect]
     Active Substance: PALBOCICLIB
     Dosage: 125 MILLIGRAM
     Route: 048
     Dates: start: 20191018
  17. PERTUZUMAB [Suspect]
     Active Substance: PERTUZUMAB
     Indication: Breast cancer
     Dosage: 840 MILLIGRAM, Q3W (MOST RECENT DOSE PRIOR)
     Route: 042
     Dates: start: 20180810
  18. PERTUZUMAB [Suspect]
     Active Substance: PERTUZUMAB
     Dosage: 840 MILLIGRAM, Q3W (MOST RECENT DOSE PRIOR)
     Route: 042
     Dates: start: 20180831
  19. PACLITAXEL [Suspect]
     Active Substance: PACLITAXEL
     Indication: Breast cancer
     Dosage: 142.11 MILLIGRAM, QW (MOST RECENT DOSE)
     Route: 042
     Dates: start: 20180928, end: 20181005
  20. PACLITAXEL [Suspect]
     Active Substance: PACLITAXEL
     Dosage: UNK
  21. ADO-TRASTUZUMAB EMTANSINE [Suspect]
     Active Substance: ADO-TRASTUZUMAB EMTANSINE
     Indication: Breast cancer
     Dosage: 154 MILLIGRAM, Q3W (154 MG EVERY 3 WEEKS )
     Route: 042
     Dates: start: 20190704, end: 20190704
  22. ABRAXANE [Suspect]
     Active Substance: PACLITAXEL
     Indication: Breast cancer
     Dosage: 142.11 MILLIGRAM, QW
     Route: 042
     Dates: start: 20180928, end: 20181005
  23. ABRAXANE [Suspect]
     Active Substance: PACLITAXEL
     Dosage: 142.11 MILLIGRAM, QW
     Route: 042
     Dates: start: 20181019
  24. LASIX [Concomitant]
     Active Substance: FUROSEMIDE
     Indication: Oedema peripheral
     Dosage: UNK
     Dates: start: 20191106, end: 20191115
  25. Guttalax [Concomitant]
     Indication: Product used for unknown indication
     Dosage: UNK
     Dates: start: 20191115
  26. CALCIUM CHLORIDE\SODIUM CHLORIDE\SODIUM PHOSPHATE, DIBASIC, ANHYDROUS\ [Concomitant]
     Active Substance: CALCIUM CHLORIDE\SODIUM CHLORIDE\SODIUM PHOSPHATE, DIBASIC, ANHYDROUS\SODIUM PHOSPHATE, MONOBASIC, A
     Indication: Mucosal inflammation
     Dosage: UNK (ONGOING = NOT CHECKED)
     Dates: start: 20180921
  27. CEOLAT [Concomitant]
     Indication: Product used for unknown indication
     Dosage: UNK
     Dates: start: 20191115
  28. CEOLAT [Concomitant]
     Dosage: UNK
     Dates: start: 20181115
  29. DEXIBUPROFEN [Concomitant]
     Active Substance: DEXIBUPROFEN
     Indication: Osteonecrosis of jaw
     Dosage: UNK
     Dates: start: 20190725, end: 20191015
  30. DEXIBUPROFEN [Concomitant]
     Active Substance: DEXIBUPROFEN
     Dosage: UNK
  31. MORPHINE [Concomitant]
     Active Substance: MORPHINE
     Indication: Dyspnoea
     Dosage: UNK
     Dates: start: 20191111
  32. KONAKION [Concomitant]
     Active Substance: PHYTONADIONE
     Dosage: UNK
     Dates: start: 20191115
  33. ENTEROBENE [Concomitant]
     Indication: Diarrhoea
     Dosage: UNK (ONGOING = CHECKED)
     Dates: start: 20181127
  34. TRAZODONE HYDROCHLORIDE [Concomitant]
     Active Substance: TRAZODONE HYDROCHLORIDE
     Indication: Product used for unknown indication
     Dosage: UNK (ONGOING = CHECKED)
  35. PANTOPRAZOLE SODIUM [Concomitant]
     Active Substance: PANTOPRAZOLE SODIUM
     Indication: Abdominal pain upper
     Dosage: UNK (ONGOING = NOT CHECKED)
     Dates: start: 20181109, end: 20191101
  36. Paspertin [Concomitant]
     Indication: Nausea
     Dosage: UNK
     Dates: start: 20191108, end: 20191115
  37. MYCOSTATIN [Concomitant]
     Active Substance: NYSTATIN
     Indication: Mucosal inflammation
     Dosage: UNK (ONGOING = NOT CHECKED)
     Dates: start: 20190819
  38. Temesta [Concomitant]
     Indication: Product used for unknown indication
     Dosage: UNK (ONGOING = CHECKED)
  39. POLYETHYLENE GLYCOL 3350\POTASSIUM CHLORIDE\SODIUM BICARBONATE\SODIUM [Concomitant]
     Active Substance: POLYETHYLENE GLYCOL 3350\POTASSIUM CHLORIDE\SODIUM BICARBONATE\SODIUM CHLORIDE
     Indication: Product used for unknown indication
     Dosage: UNK
     Dates: start: 20191115
  40. ANTIFLAT [Concomitant]
     Indication: Product used for unknown indication
     Dosage: UNK (ONGOING = CHECKED)
     Dates: start: 20181126
  41. CIPROFLOXACIN [Concomitant]
     Active Substance: CIPROFLOXACIN
     Indication: Gastroenteritis radiation
     Dosage: UNK (ONGOING = NOT CHECKED)
     Dates: start: 20181118
  42. TAZOBACTAM [Concomitant]
     Active Substance: TAZOBACTAM
     Indication: Infection
     Dosage: UNK (ONGOING = NOT CHECKED)
     Dates: start: 20191102, end: 20191113
  43. MEFENAMIC ACID [Concomitant]
     Active Substance: MEFENAMIC ACID
     Indication: Arthralgia
     Dosage: UNK (ONGOING = CHECKED)
     Dates: start: 20180914
  44. METAMIZOLE SODIUM [Concomitant]
     Active Substance: METAMIZOLE SODIUM
     Indication: Product used for unknown indication
     Dosage: UNK (ONGOING = NOT CHECKED)
     Dates: start: 20181126, end: 20191103
  45. AVELOX [Concomitant]
     Active Substance: MOXIFLOXACIN HYDROCHLORIDE
     Indication: Osteonecrosis of jaw
     Dosage: UNK (ONGOING = NOT CHECKED)
     Dates: start: 20190919, end: 20191101
  46. DEXAMETHASONE [Concomitant]
     Active Substance: DEXAMETHASONE
     Dosage: UNK
     Dates: start: 20191115
  47. POLYETHYLENE GLYCOLS [Concomitant]
     Active Substance: POLYETHYLENE GLYCOLS
     Indication: Product used for unknown indication
     Dosage: UNK

REACTIONS (5)
  - Ascites [Recovering/Resolving]
  - Neutrophil count decreased [Recovered/Resolved]
  - White blood cell count decreased [Recovered/Resolved]
  - Underdose [Unknown]
  - Overdose [Unknown]

NARRATIVE: CASE EVENT DATE: 20191004
